FAERS Safety Report 17794869 (Version 2)
Quarter: 2020Q3

REPORT INFORMATION
  Report Type: Spontaneous
  Country: US (occurrence: US)
  Receive Date: 20200515
  Receipt Date: 20200715
  Transmission Date: 20201102
  Serious: Yes (Other)
  Sender: FDA-Public Use
  Company Number: US-SA-2020SA124604

PATIENT

DRUGS (2)
  1. LANTUS [Suspect]
     Active Substance: INSULIN GLARGINE
     Dosage: 3 UNITS IN THE MORNING AND 25 UNITS AT NIGHT, BID
     Route: 065
  2. HUMALOG [Concomitant]
     Active Substance: INSULIN LISPRO
     Dosage: UNK
     Route: 065

REACTIONS (4)
  - Inappropriate schedule of product administration [Unknown]
  - Non-Hodgkin^s lymphoma [Recovered/Resolved]
  - Blood glucose increased [Unknown]
  - Cardiac failure congestive [Recovered/Resolved]
